FAERS Safety Report 7894405-4 (Version None)
Quarter: 2011Q4

REPORT INFORMATION
  Report Type: 
  Country: None (occurrence: None)
  Receive Date: 20111104
  Receipt Date: 20111026
  Transmission Date: 20120403
  Serious: Yes (Hospitalization)
  Sender: FDA-Public Use
  Company Number: FR-ASTRAZENECA-2011SE65279

PATIENT
  Age: 16752 Day
  Sex: Male

DRUGS (10)
  1. DROPERIDOL [Suspect]
     Route: 042
     Dates: start: 20111004, end: 20111004
  2. VANCOMYCIN [Concomitant]
     Dates: start: 20111004
  3. PROPOFOL [Suspect]
     Route: 042
     Dates: start: 20111004, end: 20111004
  4. NAROPIN [Suspect]
     Route: 042
     Dates: start: 20111004, end: 20111004
  5. KETAMINE HCL [Suspect]
     Route: 042
     Dates: start: 20111004, end: 20111004
  6. MIDAZOLAM [Suspect]
     Route: 042
     Dates: start: 20111004, end: 20111004
  7. SUFENTANIL CITRATE [Suspect]
     Route: 042
     Dates: start: 20111004, end: 20111004
  8. CEFEPIME [Suspect]
     Route: 042
     Dates: start: 20111004, end: 20111004
  9. ACETAMINOPHEN [Suspect]
     Route: 042
     Dates: start: 20111004, end: 20111004
  10. GENTAMICIN [Concomitant]
     Dates: start: 20111004

REACTIONS (1)
  - RASH PAPULAR [None]
